FAERS Safety Report 8167957-7 (Version None)
Quarter: 2012Q1

REPORT INFORMATION
  Report Type: 
  Country: None (occurrence: None)
  Receive Date: 20120227
  Receipt Date: 20120221
  Transmission Date: 20120608
  Serious: Yes (Hospitalization)
  Sender: FDA-Public Use
  Company Number: FR-GLAXOSMITHKLINE-B0690025A

PATIENT
  Sex: Male

DRUGS (2)
  1. TEMOZOLOMIDE [Suspect]
     Indication: NEOPLASM
     Dosage: 150MGM2 CYCLIC
     Route: 048
     Dates: start: 20101116
  2. TOPOTECAN [Suspect]
     Indication: NEOPLASM
     Dosage: .75MGM2 CYCLIC
     Route: 042
     Dates: start: 20101116

REACTIONS (1)
  - FEBRILE BONE MARROW APLASIA [None]
